FAERS Safety Report 9780341 (Version 3)
Quarter: 2014Q1

REPORT INFORMATION
  Report Type: Spontaneous
  Country: DE (occurrence: DE)
  Receive Date: 20131224
  Receipt Date: 20140207
  Transmission Date: 20141002
  Serious: Yes (Other)
  Sender: FDA-Public Use
  Company Number: DE-ROCHE-1323748

PATIENT
  Age: 44 Year
  Sex: Male
  Weight: 78 kg

DRUGS (3)
  1. MIRCERA [Suspect]
     Indication: NEPHROGENIC ANAEMIA
     Dosage: LAST DOSE ADMINISTRATION PRIOR TO SAMPLING WAS GIVEN ON 19/DEC/2013.
     Route: 058
     Dates: start: 20111206
  2. MIRCERA [Suspect]
     Route: 058
  3. MIRCERA [Suspect]
     Route: 058
     Dates: end: 20111219

REACTIONS (8)
  - Aplasia pure red cell [Not Recovered/Not Resolved]
  - Drug ineffective [Unknown]
  - Skin reaction [Unknown]
  - Urticaria [Not Recovered/Not Resolved]
  - Device related infection [Not Recovered/Not Resolved]
  - Otitis media [Unknown]
  - Asthenia [Unknown]
  - Fatigue [Unknown]
